FAERS Safety Report 6680855-0 (Version None)
Quarter: 2010Q2

REPORT INFORMATION
  Report Type: 
  Country: None (occurrence: None)
  Receive Date: 20100413
  Receipt Date: 20100413
  Transmission Date: 20101027
  Serious: Yes (Life-Threatening, Hospitalization, Disabling)
  Sender: FDA-Public Use
  Company Number: None

PATIENT
  Age: 58 Year
  Sex: Male
  Weight: 108.8633 kg

DRUGS (7)
  1. METOLAZONE [Suspect]
     Dosage: ONE DAILY PO
     Route: 048
     Dates: start: 20100308, end: 20100322
  2. LIPITOR [Concomitant]
  3. NIACIN [Concomitant]
  4. MORPHINE SUL [Concomitant]
  5. CARDIZEM [Concomitant]
  6. WELCHOL [Concomitant]
  7. STENT [Concomitant]

REACTIONS (1)
  - BLOOD POTASSIUM DECREASED [None]
